FAERS Safety Report 18299165 (Version 1)
Quarter: 2020Q3

REPORT INFORMATION
  Report Type: Spontaneous
  Country: FR (occurrence: FR)
  Receive Date: 20200922
  Receipt Date: 20200922
  Transmission Date: 20201103
  Serious: Yes (Other)
  Sender: FDA-Public Use
  Company Number: FR-PFIZER INC-2020362083

PATIENT
  Age: 15 Year
  Sex: Male
  Weight: 100 kg

DRUGS (3)
  1. METHYLENEDIOXYMETHAMPHETAMINE [Suspect]
     Active Substance: MIDOMAFETAMINE
     Dates: start: 20200623, end: 20200624
  2. CANNABIS [Suspect]
     Active Substance: CANNABIS SATIVA SUBSP. INDICA TOP
     Dates: start: 20200623, end: 20200624
  3. LYRICA [Suspect]
     Active Substance: PREGABALIN
     Dosage: UNK
     Dates: start: 20200623, end: 20200624

REACTIONS (5)
  - Drug abuse [Recovering/Resolving]
  - Off label use [Unknown]
  - Altered state of consciousness [Recovered/Resolved]
  - Behaviour disorder [Recovered/Resolved]
  - Product use issue [Unknown]

NARRATIVE: CASE EVENT DATE: 20200623
